FAERS Safety Report 7023287-8 (Version None)
Quarter: 2010Q3

REPORT INFORMATION
  Report Type: 
  Country: None (occurrence: None)
  Receive Date: 20100916
  Receipt Date: 20100802
  Transmission Date: 20110219
  Serious: No
  Sender: FDA-Public Use
  Company Number: DKLU1064117

PATIENT
  Age: 19 Month
  Sex: Male

DRUGS (4)
  1. SABRIL [Suspect]
     Indication: INFANTILE SPASMS
     Dosage: 500 MG MILLIGRAM(S), 2 IN 1 D, ORAL; 2 IN 1 D, ORAL; 500 MG MILLIGRAM(S), AM, ORAL; 1000 MG MILLIGRA
     Route: 048
     Dates: start: 20091201, end: 20100601
  2. SABRIL [Suspect]
     Indication: INFANTILE SPASMS
     Dosage: 500 MG MILLIGRAM(S), 2 IN 1 D, ORAL; 2 IN 1 D, ORAL; 500 MG MILLIGRAM(S), AM, ORAL; 1000 MG MILLIGRA
     Route: 048
     Dates: start: 20100601, end: 20100601
  3. SABRIL [Suspect]
     Indication: INFANTILE SPASMS
     Dosage: 500 MG MILLIGRAM(S), 2 IN 1 D, ORAL; 2 IN 1 D, ORAL; 500 MG MILLIGRAM(S), AM, ORAL; 1000 MG MILLIGRA
     Route: 048
     Dates: start: 20100601
  4. SABRIL [Suspect]
     Indication: INFANTILE SPASMS
     Dosage: 500 MG MILLIGRAM(S), 2 IN 1 D, ORAL; 2 IN 1 D, ORAL; 500 MG MILLIGRAM(S), AM, ORAL; 1000 MG MILLIGRA
     Route: 048
     Dates: start: 20100601

REACTIONS (1)
  - URINE OUTPUT INCREASED [None]
